FAERS Safety Report 26141371 (Version 1)
Quarter: 2025Q4

REPORT INFORMATION
  Report Type: Spontaneous
  Country: US (occurrence: None)
  Receive Date: 20251210
  Receipt Date: 20251210
  Transmission Date: 20260117
  Serious: No
  Sender: HALOZYME
  Company Number: US-HALOZYME THERAPEUTICS, INC.-2025-US-TX -03725

PATIENT
  Age: 77 Year

DRUGS (2)
  1. XYOSTED [Suspect]
     Active Substance: TESTOSTERONE ENANTHATE
     Indication: Blood testosterone decreased
     Dosage: 75 MG/0.5ML, Q 1 WK (WITHDRAWN)
     Route: 058
  2. XYOSTED [Suspect]
     Active Substance: TESTOSTERONE ENANTHATE
     Dosage: 50 MG/0.5ML, Q 1 WK
     Route: 058

REACTIONS (1)
  - Blood testosterone increased [Unknown]
